FAERS Safety Report 10415365 (Version 2)
Quarter: 2014Q3

REPORT INFORMATION
  Report Type: Spontaneous
  Country: US (occurrence: US)
  Receive Date: 20140828
  Receipt Date: 20140828
  Transmission Date: 20150326
  Serious: Yes (Other)
  Sender: FDA-Public Use
  Company Number: US-009507513-2008-185657-NL

PATIENT
  Sex: Female
  Weight: 123.8 kg

DRUGS (4)
  1. NUVARING [Suspect]
     Active Substance: ETHINYL ESTRADIOL\ETONOGESTREL
     Indication: CONTRACEPTION
     Dosage: DOSE TEXT: 3 WEEKS IN, 1 WEEK OUT, CONTINUING: NO
     Route: 067
     Dates: start: 20060524, end: 20061028
  2. TUMS [Concomitant]
     Active Substance: CALCIUM CARBONATE
     Indication: DYSPEPSIA
     Dosage: DOSE TEXT: 1-2 DAILY, INDICATION 2 (LLT): CALCIUM (CALCIUM SUPPLEMENTATION)
     Dates: start: 200610
  3. NUVARING [Suspect]
     Active Substance: ETHINYL ESTRADIOL\ETONOGESTREL
     Indication: MENSTRUAL CYCLE MANAGEMENT
  4. SYNTHROID [Concomitant]
     Active Substance: LEVOTHYROXINE SODIUM
     Indication: HYPOTHYROIDISM
     Dosage: FREQUENCY: QD

REACTIONS (7)
  - Pyelonephritis [Unknown]
  - Uterine leiomyoma [Unknown]
  - Small intestinal obstruction [Recovering/Resolving]
  - Menstruation irregular [Unknown]
  - Deep vein thrombosis [Recovered/Resolved]
  - Off label use [Unknown]
  - Device expulsion [Unknown]

NARRATIVE: CASE EVENT DATE: 200605
